FAERS Safety Report 7145901-9 (Version None)
Quarter: 2010Q4

REPORT INFORMATION
  Report Type: 
  Country: None (occurrence: None)
  Receive Date: 20101208
  Receipt Date: 20101125
  Transmission Date: 20110411
  Serious: Yes (Hospitalization)
  Sender: FDA-Public Use
  Company Number: FR-ELI_LILLY_AND_COMPANY-FR201011006790

PATIENT
  Age: 73 Year
  Sex: Male

DRUGS (1)
  1. ALIMTA [Suspect]
     Indication: NEOPLASM PROGRESSION
     Route: 042

REACTIONS (4)
  - BLOOD DISORDER [None]
  - PANCYTOPENIA [None]
  - PURPURA [None]
  - TOXIC SKIN ERUPTION [None]
